FAERS Safety Report 10979621 (Version 2)
Quarter: 2015Q3

REPORT INFORMATION
  Report Type: Spontaneous
  Country: US (occurrence: US)
  Receive Date: 20150402
  Receipt Date: 20150724
  Transmission Date: 20151125
  Serious: Yes (Other)
  Sender: FDA-Public Use
  Company Number: US-ASTRAZENECA-2014SE20952

PATIENT
  Age: 57 Year
  Sex: Male
  Weight: 128.8 kg

DRUGS (15)
  1. CARVEDILOL. [Concomitant]
     Active Substance: CARVEDILOL
     Route: 048
  2. BYETTA [Suspect]
     Active Substance: EXENATIDE
     Dosage: LAST DOSE ON FEB 10
     Route: 065
     Dates: start: 200909, end: 201002
  3. HUMULIN NOS [Concomitant]
     Active Substance: INSULIN HUMAN
     Dosage: 500 UNIT SUBCUTANEOUS SOLUTION
  4. DIGOXIN. [Concomitant]
     Active Substance: DIGOXIN
     Route: 048
  5. SIMVASTATIN. [Concomitant]
     Active Substance: SIMVASTATIN
     Route: 048
  6. FUROSEMIDE. [Concomitant]
     Active Substance: FUROSEMIDE
     Route: 048
  7. OXYMORPHONE [Concomitant]
     Active Substance: OXYMORPHONE
     Route: 048
  8. UROGESIC [Concomitant]
  9. BYETTA [Suspect]
     Active Substance: EXENATIDE
     Route: 065
     Dates: start: 20090915
  10. TAMSULOSIN [Concomitant]
     Active Substance: TAMSULOSIN
  11. LOSARTAN. [Concomitant]
     Active Substance: LOSARTAN
  12. CLONAZEPAM. [Concomitant]
     Active Substance: CLONAZEPAM
     Route: 048
  13. GABAPENTIN. [Concomitant]
     Active Substance: GABAPENTIN
     Route: 048
  14. ADVAIR HFA [Concomitant]
     Active Substance: FLUTICASONE PROPIONATE\SALMETEROL XINAFOATE
  15. NITROFURANTOIN. [Concomitant]
     Active Substance: NITROFURANTOIN

REACTIONS (4)
  - Pancreatitis chronic [Unknown]
  - Prostate cancer [Unknown]
  - Pancreatic cyst [Unknown]
  - Adenocarcinoma pancreas [Unknown]

NARRATIVE: CASE EVENT DATE: 2010
